FAERS Safety Report 6992576 (Version 3)
Quarter: 2018Q1

REPORT INFORMATION
  Report Type: Spontaneous
  Country: PL (occurrence: PL)
  Receive Date: 20090501
  Receipt Date: 20180121
  Transmission Date: 20180509
  Serious: Yes (Hospitalization)
  Sender: FDA-Public Use
  Company Number: GXKR2009PL04957

PATIENT
  Age: 75 Year
  Sex: Male

DRUGS (10)
  1. CILAZAPRIL [Interacting]
     Active Substance: CILAZAPRIL ANHYDROUS
     Indication: TACHYCARDIA PAROXYSMAL
     Dosage: 1 MG, QD
     Route: 065
  2. AMLODIPINE [Interacting]
     Active Substance: AMLODIPINE BESYLATE
     Indication: TACHYCARDIA PAROXYSMAL
     Dosage: UNK
     Route: 065
  3. CARVEDILOL. [Suspect]
     Active Substance: CARVEDILOL
     Indication: SUPRAVENTRICULAR TACHYCARDIA
     Dosage: 6.25 MG, QD
     Route: 065
     Dates: start: 200504
  4. FUROSEMIDE. [Concomitant]
     Active Substance: FUROSEMIDE
     Indication: PRODUCT USED FOR UNKNOWN INDICATION
     Dosage: 40 MG, QD
     Route: 065
  5. ATORVASTATIN [Concomitant]
     Active Substance: ATORVASTATIN
     Indication: PRODUCT USED FOR UNKNOWN INDICATION
     Dosage: 20 MG, QD
     Route: 065
  6. OPACORDEN [Suspect]
     Active Substance: AMIODARONE HYDROCHLORIDE
     Indication: SUPRAVENTRICULAR TACHYCARDIA
     Dosage: 200 MG, QD
     Route: 065
  7. ALLOPURINOL. [Interacting]
     Active Substance: ALLOPURINOL
     Indication: TACHYCARDIA PAROXYSMAL
     Dosage: UNK
     Route: 065
  8. ACETYLSALICYLIC ACID [Concomitant]
     Active Substance: ASPIRIN
     Indication: PRODUCT USED FOR UNKNOWN INDICATION
     Dosage: 75 MG, QD
     Route: 065
  9. NEORECORMON [Concomitant]
     Active Substance: ERYTHROPOIETIN
     Indication: PRODUCT USED FOR UNKNOWN INDICATION
     Dosage: 1000 U, QW
     Route: 058
  10. NEO RECORMON [Concomitant]
     Active Substance: ERYTHROPOIETIN
     Indication: TACHYCARDIA PAROXYSMAL
     Dosage: 1000 U, QW
     Route: 065

REACTIONS (5)
  - Tachycardia [Recovered/Resolved]
  - Bradycardia [Recovered/Resolved]
  - Drug interaction [Unknown]
  - Supraventricular tachycardia [Recovered/Resolved]
  - Chronic kidney disease [Unknown]

NARRATIVE: CASE EVENT DATE: 2005
